FAERS Safety Report 10230823 (Version 1)
Quarter: 2014Q2

REPORT INFORMATION
  Report Type: Report from Study
  Country: CA (occurrence: CA)
  Receive Date: 20140611
  Receipt Date: 20140611
  Transmission Date: 20141212
  Serious: Yes (Hospitalization)
  Sender: FDA-Public Use
  Company Number: CA-JNJFOC-20140602602

PATIENT
  Age: 65 Year
  Sex: Male

DRUGS (7)
  1. REMICADE [Suspect]
     Indication: COLITIS ULCERATIVE
     Dosage: 29TH INFUSION
     Route: 042
     Dates: start: 20140304
  2. REMICADE [Suspect]
     Indication: COLITIS ULCERATIVE
     Route: 042
     Dates: start: 20090714
  3. IMURAN [Concomitant]
     Route: 048
  4. METFORMIN [Concomitant]
     Route: 065
  5. CYMBALTA [Concomitant]
     Route: 065
  6. GABAPENTIN [Concomitant]
     Route: 065
  7. LANTUS [Concomitant]
     Route: 065

REACTIONS (2)
  - Sensory loss [Recovered/Resolved]
  - Muscle disorder [Recovered/Resolved]
